FAERS Safety Report 11641294 (Version 1)
Quarter: 2015Q4

REPORT INFORMATION
  Report Type: Report from Study
  Country: GT (occurrence: GT)
  Receive Date: 20151019
  Receipt Date: 20151019
  Transmission Date: 20160304
  Serious: Yes (Disabling)
  Sender: FDA-Public Use
  Company Number: GT-BAYER-2015-399096

PATIENT
  Age: 47 Year
  Sex: Male

DRUGS (3)
  1. EUTIROX [Concomitant]
     Active Substance: LEVOTHYROXINE SODIUM
  2. ESOMEPRAZOLE [Concomitant]
     Active Substance: ESOMEPRAZOLE
  3. NEXAVAR [Suspect]
     Active Substance: SORAFENIB
     Indication: THYROID CANCER
     Dosage: 200 MG, BID
     Route: 048
     Dates: start: 20150701

REACTIONS (6)
  - Bronchitis [Recovering/Resolving]
  - Stomatitis [Not Recovered/Not Resolved]
  - Aphonia [Recovering/Resolving]
  - Speech disorder [Not Recovered/Not Resolved]
  - Dysphagia [Recovered/Resolved]
  - Dysphonia [Not Recovered/Not Resolved]

NARRATIVE: CASE EVENT DATE: 20150727
